FAERS Safety Report 8790991 (Version 1)
Quarter: 2012Q4

REPORT INFORMATION
  Report Type: Spontaneous
  Country: US (occurrence: None)
  Receive Date: 20120910
  Receipt Date: 20120910
  Transmission Date: 20130627
  Serious: Yes (Other)
  Sender: FDA-Public Use
  Company Number: FK201202549

PATIENT
  Age: 57 Year
  Sex: Male
  Weight: 94.1 kg

DRUGS (17)
  1. DEXAMETHASONE [Suspect]
     Indication: MULTIPLE MYELOMA
     Dosage: 4mg, day of and day after velcade, oral
     Route: 049
     Dates: start: 20120516
  2. VELCADE [Suspect]
     Indication: MULTIPLE MYELOMA
     Dosage: 2.7 mg, every 1 week, subcutaneous
     Route: 058
     Dates: start: 20120516
  3. CYCLOPHOSPHAMIDE [Suspect]
     Indication: MULTIPLE MYELOMA
     Route: 048
     Dates: start: 20120516
  4. INDOMETHACIN [Concomitant]
  5. OXYCODONE (OXYCODONE) [Concomitant]
  6. TESSALON (BENZONATATE) [Concomitant]
  7. ALLOPURINOL (ALLOPURINOL) [Concomitant]
  8. AMBIEN (ZOLPIDEM TARTRATE) [Concomitant]
  9. ASPIRIN EC (ACETYLSALICYLIC ACID) [Concomitant]
  10. CARVEDILOL (CARVEDILOL) [Concomitant]
  11. CYTOXAN (CYCLOPHOSPHAMIDE) [Concomitant]
  12. DEXAMETHASONE (DEXAMETHADONE) [Concomitant]
  13. LISINOPRIL (LISINOPRIL) [Concomitant]
  14. LYRICA (PREGABALIN) [Concomitant]
  15. MAGNESIUM (MAGNESIUM) [Concomitant]
  16. METFORMIN (METFORMIN) [Concomitant]
  17. VALTREX (VALACICLOVIR HYDROCHLORIDE) [Concomitant]

REACTIONS (4)
  - Back pain [None]
  - Abdominal pain [None]
  - Spinal cord compression [None]
  - Spinal deformity [None]
